FAERS Safety Report 21360756 (Version 1)
Quarter: 2022Q3

REPORT INFORMATION
  Report Type: Spontaneous
  Country: US (occurrence: US)
  Receive Date: 20220921
  Receipt Date: 20220921
  Transmission Date: 20221027
  Serious: No
  Sender: FDA-Public Use
  Company Number: US-JNJFOC-20220929024

PATIENT
  Sex: Female
  Weight: 75.364 kg

DRUGS (20)
  1. INVEGA SUSTENNA [Suspect]
     Active Substance: PALIPERIDONE PALMITATE
     Indication: Schizoaffective disorder bipolar type
     Route: 030
     Dates: start: 20220822
  2. INVEGA SUSTENNA [Suspect]
     Active Substance: PALIPERIDONE PALMITATE
     Indication: Borderline personality disorder
     Route: 030
     Dates: start: 20220831
  3. INVEGA SUSTENNA [Suspect]
     Active Substance: PALIPERIDONE PALMITATE
  4. KLONOPIN [Concomitant]
     Active Substance: CLONAZEPAM
     Route: 065
  5. TRAZODONE [Concomitant]
     Active Substance: TRAZODONE HYDROCHLORIDE
     Route: 065
  6. OXYCODONE [Concomitant]
     Active Substance: OXYCODONE
     Route: 065
  7. TRAMADOL [Concomitant]
     Active Substance: TRAMADOL
     Route: 065
  8. ZYPREXA [Concomitant]
     Active Substance: OLANZAPINE
     Dosage: AT NIGHT
     Route: 065
  9. THORAZINE [Concomitant]
     Active Substance: CHLORPROMAZINE
     Route: 065
  10. PROPRANOLOL HYDROCHLORIDE [Concomitant]
     Active Substance: PROPRANOLOL HYDROCHLORIDE
     Route: 065
  11. LITHIUM [Concomitant]
     Active Substance: LITHIUM
     Route: 065
  12. LITHIUM [Concomitant]
     Active Substance: LITHIUM
     Route: 065
  13. GABAPENTIN [Concomitant]
     Active Substance: GABAPENTIN
     Route: 065
  14. FLEXERIL [Concomitant]
     Active Substance: CYCLOBENZAPRINE HYDROCHLORIDE
     Route: 065
  15. DOXEPIN [Concomitant]
     Active Substance: DOXEPIN
     Route: 065
  16. TIZANIDINE [Concomitant]
     Active Substance: TIZANIDINE
     Route: 065
  17. ATIVAN [Concomitant]
     Active Substance: LORAZEPAM
     Route: 065
  18. NORCO [Concomitant]
     Active Substance: ACETAMINOPHEN\HYDROCODONE BITARTRATE
     Route: 065
  19. ACETAMINOPHEN [Concomitant]
     Active Substance: ACETAMINOPHEN
     Route: 065
  20. ADDERALL [Concomitant]
     Active Substance: AMPHETAMINE ASPARTATE\AMPHETAMINE SULFATE\DEXTROAMPHETAMINE SACCHARATE\DEXTROAMPHETAMINE SULFATE
     Dosage: 8/8
     Route: 065

REACTIONS (1)
  - Abnormal weight gain [Unknown]
